FAERS Safety Report 16771409 (Version 1)
Quarter: 2019Q3

REPORT INFORMATION
  Report Type: Spontaneous
  Country: NL (occurrence: NL)
  Receive Date: 20190904
  Receipt Date: 20190904
  Transmission Date: 20191005
  Serious: Yes (Hospitalization)
  Sender: FDA-Public Use
  Company Number: NL-TEVA-2019-NL-1100398

PATIENT
  Age: 72 Year
  Sex: Male
  Weight: 90 kg

DRUGS (4)
  1. OMEPRAZOL [Concomitant]
     Active Substance: OMEPRAZOLE
     Dosage: 1DD 40MG
  2. CAPECITABINE FILMOMHULDE TABLET, 500 MG (MILLIGRAM) [Suspect]
     Active Substance: CAPECITABINE
     Indication: COLORECTAL CANCER METASTATIC
     Dosage: 2500 MG/M2 DIVIDED INTO TWO DOSES
     Dates: start: 20190725, end: 20190731
  3. APIXABAN [Concomitant]
     Active Substance: APIXABAN
     Dosage: 2DD 5MG
  4. BEVACUZIMAB 677MG [Concomitant]
     Dosage: 1 DOSAGE FORMS, IV, ONE-TIME 25/7 (5TH CYCLE BEVACUZIMAB/CAPECITABINE)
     Dates: start: 20190725

REACTIONS (1)
  - Autoimmune haemolytic anaemia [Recovering/Resolving]

NARRATIVE: CASE EVENT DATE: 20190725
